FAERS Safety Report 9919857 (Version 2)
Quarter: 2014Q2

REPORT INFORMATION
  Report Type: Spontaneous
  Country: US (occurrence: US)
  Receive Date: 20140224
  Receipt Date: 20140425
  Transmission Date: 20141212
  Serious: No
  Sender: FDA-Public Use
  Company Number: US-PFIZER INC-2014049792

PATIENT
  Sex: Male

DRUGS (1)
  1. LYRICA [Suspect]
     Indication: DIABETIC NEUROPATHY
     Dosage: 50 MG, 3X/DAY
     Route: 048
     Dates: start: 20140201, end: 20140214

REACTIONS (5)
  - Peripheral swelling [Not Recovered/Not Resolved]
  - Erythema [Not Recovered/Not Resolved]
  - Pain in extremity [Not Recovered/Not Resolved]
  - Haemoglobin decreased [Not Recovered/Not Resolved]
  - Anaemia [Not Recovered/Not Resolved]
